FAERS Safety Report 12413284 (Version 2)
Quarter: 2016Q2

REPORT INFORMATION
  Report Type: Report from Study
  Country: BR (occurrence: BR)
  Receive Date: 20160527
  Receipt Date: 20160617
  Transmission Date: 20160815
  Serious: Yes (Other)
  Sender: FDA-Public Use
  Company Number: BR-ABBVIE-16K-020-1635872-00

PATIENT
  Sex: Female
  Weight: 63 kg

DRUGS (5)
  1. HUMIRA [Suspect]
     Active Substance: ADALIMUMAB
     Indication: RHEUMATOID ARTHRITIS
     Route: 058
     Dates: start: 20150310
  2. RIVOTRIL [Concomitant]
     Active Substance: CLONAZEPAM
     Indication: DEPRESSION
     Route: 048
  3. CYMBALTA [Concomitant]
     Active Substance: DULOXETINE HYDROCHLORIDE
     Indication: DEPRESSION
     Route: 048
  4. OLCADIL [Concomitant]
     Active Substance: CLOXAZOLAM
     Indication: DEPRESSION
     Route: 048
  5. LAMITOR [Concomitant]
     Active Substance: LAMOTRIGINE
     Indication: DEPRESSION
     Route: 048

REACTIONS (7)
  - Blood glucose abnormal [Recovered/Resolved]
  - Tooth fracture [Unknown]
  - Gingival atrophy [Unknown]
  - Procedural anxiety [Recovered/Resolved]
  - Bone loss [Unknown]
  - Bruxism [Unknown]
  - Blood pressure increased [Recovered/Resolved]
